FAERS Safety Report 5303186-X (Version None)
Quarter: 2007Q2

REPORT INFORMATION
  Report Type: 
  Country: None (occurrence: None)
  Receive Date: 20070420
  Receipt Date: 20070411
  Transmission Date: 20071010
  Serious: Yes (Hospitalization)
  Sender: FDA-Public Use
  Company Number: FR-GENENTECH-239896

PATIENT
  Sex: Male

DRUGS (5)
  1. MABTHERA [Suspect]
     Indication: WEGENER'S GRANULOMATOSIS
     Route: 042
     Dates: start: 20060503
  2. SOLUPRED [Concomitant]
     Indication: WEGENER'S GRANULOMATOSIS
     Dosage: 20 MG, UNK
     Route: 048
     Dates: start: 20030301
  3. OMEPRAZOLE [Concomitant]
     Indication: DRUG USE FOR UNKNOWN INDICATION
     Dosage: 20 MG, QD
     Route: 048
     Dates: start: 20050101
  4. KAYEXALATE [Concomitant]
     Indication: DRUG USE FOR UNKNOWN INDICATION
  5. NEORECORMON [Concomitant]
     Indication: DRUG USE FOR UNKNOWN INDICATION
     Dosage: 4000 IU, 3/WEEK
     Dates: start: 20070111

REACTIONS (1)
  - HEPATITIS [None]
